FAERS Safety Report 20628868 (Version 1)
Quarter: 2022Q1

REPORT INFORMATION
  Report Type: Spontaneous
  Country: US (occurrence: None)
  Receive Date: 20220323
  Receipt Date: 20220323
  Transmission Date: 20220423
  Serious: Yes (Hospitalization)
  Sender: FDA-Public Use
  Company Number: None

PATIENT
  Age: 27 Year
  Sex: Female
  Weight: 27 kg

DRUGS (1)
  1. HOMEOPATHICS [Suspect]
     Active Substance: HOMEOPATHICS
     Indication: Diarrhoea
     Dosage: FREQUENCY : 3 TIMES A DAY;?

REACTIONS (5)
  - Clostridium test positive [None]
  - Campylobacter test positive [None]
  - Weight decreased [None]
  - Product formulation issue [None]
  - Product contamination microbial [None]

NARRATIVE: CASE EVENT DATE: 20220322
